FAERS Safety Report 22518817 (Version 9)
Quarter: 2023Q4

REPORT INFORMATION
  Report Type: Spontaneous
  Country: CA (occurrence: CA)
  Receive Date: 20230605
  Receipt Date: 20231230
  Transmission Date: 20240109
  Serious: Yes (Hospitalization)
  Sender: FDA-Public Use
  Company Number: CA-CELLTRION INC.-2023CA007214

PATIENT

DRUGS (12)
  1. INFLECTRA [Suspect]
     Active Substance: INFLIXIMAB-DYYB
     Indication: Colitis ulcerative
     Dosage: 5 MG/KG, 0, 2, 6 WEEKS, THEN EVERY 8 WEEKS
     Route: 042
     Dates: start: 20230217
  2. INFLECTRA [Suspect]
     Active Substance: INFLIXIMAB-DYYB
     Dosage: 5 MG/KG, 0, 2, 6 WEEKS, THEN EVERY 8 WEEKS
     Route: 042
     Dates: start: 20230303
  3. INFLECTRA [Suspect]
     Active Substance: INFLIXIMAB-DYYB
     Dosage: 375 MG (5 MG/KG), WEEK 6 DOSE
     Route: 042
     Dates: start: 20230331
  4. INFLECTRA [Suspect]
     Active Substance: INFLIXIMAB-DYYB
     Dosage: 375 MG, EVERY 8 WEEKS
     Route: 042
     Dates: start: 20230526
  5. INFLECTRA [Suspect]
     Active Substance: INFLIXIMAB-DYYB
     Dosage: 800 MG, AFTER 11 WEEKS 3 DAYS (PRESCRIBED EVERY 6 WEEK).
     Route: 042
     Dates: start: 20230814
  6. INFLECTRA [Suspect]
     Active Substance: INFLIXIMAB-DYYB
     Dosage: 800 MG AFTER 6 WEEKS
     Route: 042
     Dates: start: 20230925
  7. INFLECTRA [Suspect]
     Active Substance: INFLIXIMAB-DYYB
     Dosage: 800 MG EVERY 6 WEEKS
     Route: 042
     Dates: start: 20231106
  8. INFLECTRA [Suspect]
     Active Substance: INFLIXIMAB-DYYB
     Dosage: 800 MG EVERY 6 WEEKS
     Route: 042
     Dates: start: 20231218
  9. FLUOROMETHOLONE [Concomitant]
     Active Substance: FLUOROMETHOLONE
     Dosage: 1 DF
  10. METHOTREXATE [Concomitant]
     Active Substance: METHOTREXATE
     Dosage: 1 DF
  11. MESALAMINE [Concomitant]
     Active Substance: MESALAMINE
     Dosage: 1 DF
  12. NAPROXEN [Concomitant]
     Active Substance: NAPROXEN
     Dosage: 1 DROP

REACTIONS (6)
  - Therapeutic response shortened [Recovering/Resolving]
  - Condition aggravated [Recovering/Resolving]
  - Loss of therapeutic response [Unknown]
  - Malaise [Not Recovered/Not Resolved]
  - Off label use [Unknown]
  - Inappropriate schedule of product administration [Unknown]

NARRATIVE: CASE EVENT DATE: 20230101
